FAERS Safety Report 9351331 (Version 2)
Quarter: 2013Q2

REPORT INFORMATION
  Report Type: Spontaneous
  Country: GB (occurrence: GB)
  Receive Date: 20130617
  Receipt Date: 20130630
  Transmission Date: 20140414
  Serious: Yes (Hospitalization)
  Sender: FDA-Public Use
  Company Number: GB-TEVA-412548ISR

PATIENT
  Age: 40 Year
  Sex: Male

DRUGS (1)
  1. COPAXONE [Suspect]
     Indication: RELAPSING-REMITTING MULTIPLE SCLEROSIS
     Dosage: 20 MILLIGRAM DAILY;
     Route: 058
     Dates: start: 20111101

REACTIONS (2)
  - Road traffic accident [Recovering/Resolving]
  - Multiple injuries [Recovering/Resolving]
